FAERS Safety Report 4989863-9 (Version None)
Quarter: 2006Q2

REPORT INFORMATION
  Report Type: 
  Country: None (occurrence: None)
  Receive Date: 20060503
  Receipt Date: 20060417
  Transmission Date: 20061013
  Serious: Yes (Hospitalization)
  Sender: FDA-Public Use
  Company Number: BR-AVENTIS-200612307EU

PATIENT
  Age: 66 Year
  Sex: Male
  Weight: 70 kg

DRUGS (4)
  1. LASIX [Suspect]
     Indication: FLUID RETENTION
     Route: 048
     Dates: start: 20060301, end: 20060101
  2. MIFLASONA [Concomitant]
     Route: 055
  3. FLUIR [Concomitant]
  4. DOXAZOSIN [Concomitant]

REACTIONS (2)
  - RASH [None]
  - STEVENS-JOHNSON SYNDROME [None]
